FAERS Safety Report 8119253-1 (Version None)
Quarter: 2012Q1

REPORT INFORMATION
  Report Type: 
  Country: None (occurrence: None)
  Receive Date: 20120207
  Receipt Date: 20120124
  Transmission Date: 20120608
  Serious: Yes (Disabling)
  Sender: FDA-Public Use
  Company Number: US-MYLANLABS-2012S1002376

PATIENT
  Age: 53 Year
  Sex: Female

DRUGS (4)
  1. MELPHALAN HYDROCHLORIDE [Suspect]
     Indication: PLASMACYTOMA
  2. PREDNISONE [Suspect]
     Indication: PLASMACYTOMA
  3. BORTEZOMIB [Suspect]
     Indication: PLASMACYTOMA
  4. OCULAR LUBRICANT /01768801/ [Concomitant]
     Route: 047

REACTIONS (6)
  - PLASMACYTOMA [None]
  - FALL [None]
  - BLINDNESS [None]
  - BRAIN NEOPLASM MALIGNANT [None]
  - EYEBALL RUPTURE [None]
  - LAGOPHTHALMOS [None]
